FAERS Safety Report 5673271-1 (Version None)
Quarter: 2008Q2

REPORT INFORMATION
  Report Type: 
  Country: None (occurrence: None)
  Receive Date: 20080219
  Receipt Date: 20071115
  Transmission Date: 20081010
  Serious: No
  Sender: FDA-Public Use
  Company Number: TPA2007A02350

PATIENT
  Sex: Female

DRUGS (1)
  1. ROZEREM [Suspect]
     Indication: DRUG USE FOR UNKNOWN INDICATION
     Dosage: 8 MG, QHS, PER ORAL
     Route: 048
     Dates: start: 20071114

REACTIONS (2)
  - DIZZINESS [None]
  - FEELING ABNORMAL [None]
